FAERS Safety Report 10507311 (Version 1)
Quarter: 2014Q3

REPORT INFORMATION
  Report Type: Spontaneous
  Country: US (occurrence: None)
  Receive Date: 20140915
  Receipt Date: 20140915
  Transmission Date: 20150326
  Serious: Yes (Other)
  Sender: FDA-Public Use
  Company Number: 2013-US-001050

PATIENT
  Age: 17 Year
  Sex: Female
  Weight: 44.9 kg

DRUGS (2)
  1. XYREM [Suspect]
     Active Substance: SODIUM OXYBATE
     Indication: CATAPLEXY
     Route: 048
     Dates: start: 20130503, end: 2013
  2. XYREM [Suspect]
     Active Substance: SODIUM OXYBATE
     Indication: NARCOLEPSY
     Route: 048
     Dates: start: 20130503, end: 2013

REACTIONS (10)
  - Insomnia [None]
  - Irritability [None]
  - Vomiting [None]
  - Nausea [None]
  - Weight decreased [None]
  - Decreased appetite [None]
  - Rash papular [None]
  - Depression [None]
  - Local swelling [None]
  - Anxiety [None]

NARRATIVE: CASE EVENT DATE: 201305
